FAERS Safety Report 14221525 (Version 1)
Quarter: 2017Q4

REPORT INFORMATION
  Report Type: Spontaneous
  Country: US (occurrence: US)
  Receive Date: 20171124
  Receipt Date: 20171124
  Transmission Date: 20180321
  Serious: Yes (Other)
  Sender: FDA-Public Use
  Company Number: US-PFIZER INC-2017500636

PATIENT

DRUGS (7)
  1. OXAZEPAM. [Concomitant]
     Active Substance: OXAZEPAM
     Indication: ANXIETY
     Dosage: 15 MG, UNK
  2. VICODIN [Suspect]
     Active Substance: ACETAMINOPHEN\HYDROCODONE BITARTRATE
     Dosage: UNK
  3. NORCO [Concomitant]
     Active Substance: ACETAMINOPHEN\HYDROCODONE BITARTRATE
     Dosage: UNK
  4. LYRICA [Suspect]
     Active Substance: PREGABALIN
     Dosage: 75 MG, UNK
  5. FENTANYL. [Concomitant]
     Active Substance: FENTANYL
     Dosage: UNK
  6. CODEINE COUGH SYRUP [Concomitant]
     Active Substance: CODEINE
     Dosage: UNK
  7. LYRICA [Suspect]
     Active Substance: PREGABALIN
     Dosage: 100 MG, UNK

REACTIONS (10)
  - Arthritis [Recovered/Resolved]
  - Loss of consciousness [Unknown]
  - Condition aggravated [Not Recovered/Not Resolved]
  - Neoplasm malignant [Recovered/Resolved]
  - Dissociation [Unknown]
  - Disturbance in attention [Unknown]
  - Pain [Not Recovered/Not Resolved]
  - Swelling [Unknown]
  - Amnesia [Unknown]
  - Dizziness [Unknown]
